FAERS Safety Report 5507323-3 (Version None)
Quarter: 2007Q4

REPORT INFORMATION
  Report Type: 
  Country: None (occurrence: None)
  Receive Date: 20071102
  Receipt Date: 20071030
  Transmission Date: 20080405
  Serious: Yes (Hospitalization)
  Sender: FDA-Public Use
  Company Number: 2007SP021932

PATIENT
  Age: 40 Year
  Sex: Male

DRUGS (3)
  1. BETAMETHASONE [Suspect]
     Indication: PREMEDICATION
     Dosage: 4 MG;QD
     Dates: start: 20070509, end: 20070512
  2. AMOXICILLIN [Suspect]
     Indication: PROPHYLAXIS
     Dosage: 2 GM;QD
     Dates: start: 20070509, end: 20070514
  3. PROPOFAN (PROPOFAN /01607901/) [Suspect]
     Indication: PREMEDICATION
     Dosage: PO
     Route: 048
     Dates: start: 20070509, end: 20070514

REACTIONS (13)
  - ACUTE GENERALISED EXANTHEMATOUS PUSTULOSIS [None]
  - C-REACTIVE PROTEIN INCREASED [None]
  - CONJUNCTIVITIS [None]
  - DERMAL CYST [None]
  - EOSINOPHIL COUNT ABNORMAL [None]
  - EPSTEIN-BARR VIRUS ANTIGEN POSITIVE [None]
  - FACE OEDEMA [None]
  - LYMPHOCYTE COUNT ABNORMAL [None]
  - NEUTROPHIL COUNT ABNORMAL [None]
  - PYREXIA [None]
  - RASH ERYTHEMATOUS [None]
  - RASH PUSTULAR [None]
  - WHITE BLOOD CELL COUNT INCREASED [None]
